FAERS Safety Report 7525286-6 (Version None)
Quarter: 2011Q2

REPORT INFORMATION
  Report Type: 
  Country: None (occurrence: None)
  Receive Date: 20110606
  Receipt Date: 20110531
  Transmission Date: 20111010
  Serious: Yes (Other)
  Sender: FDA-Public Use
  Company Number: HU-PFIZER INC-2011119279

PATIENT
  Age: 69 Year
  Sex: Female
  Weight: 70 kg

DRUGS (10)
  1. BISOPROLOL [Concomitant]
     Dosage: UNK
  2. LEVOCETIRIZINE [Concomitant]
     Dosage: UNK
  3. CAVINTON [Concomitant]
     Dosage: UNK
  4. MINIPRESS [Concomitant]
     Dosage: UNK
  5. MEMORIL [Concomitant]
     Dosage: UNK
  6. RISEDRONIC ACID [Concomitant]
     Dosage: UNK
  7. COLECALCIFEROL [Concomitant]
     Dosage: UNK
  8. ATORVASTATIN CALCIUM [Suspect]
     Indication: BLOOD CHOLESTEROL
     Dosage: 40 MG, 1X/DAY
     Dates: start: 20100101
  9. BETAHISTINE [Concomitant]
     Dosage: UNK
  10. AMLODIPINE BESILATE/PERINDOPRIL ARGININE [Concomitant]
     Dosage: UNK

REACTIONS (5)
  - PAIN IN EXTREMITY [None]
  - MUSCULOSKELETAL PAIN [None]
  - ARTHROPATHY [None]
  - KNEE OPERATION [None]
  - PAIN [None]
